FAERS Safety Report 18174927 (Version 2)
Quarter: 2020Q4

REPORT INFORMATION
  Report Type: Spontaneous
  Country: US (occurrence: US)
  Receive Date: 20200820
  Receipt Date: 20201208
  Transmission Date: 20210113
  Serious: No
  Sender: FDA-Public Use
  Company Number: US-SA-2020SA218416

PATIENT

DRUGS (2)
  1. CAPRELSA [Suspect]
     Active Substance: VANDETANIB
     Indication: THYROID CANCER
     Dosage: 300 MG, QD (IN THE AFTERNOON WITH FOOD)
     Route: 048
     Dates: start: 20200410
  2. SYNTHROID [Concomitant]
     Active Substance: LEVOTHYROXINE SODIUM
     Dosage: UNK
     Route: 065

REACTIONS (4)
  - Dry skin [Unknown]
  - Diarrhoea [Unknown]
  - Blood magnesium decreased [Unknown]
  - Vocal cord paralysis [Unknown]
